FAERS Safety Report 7466562-5 (Version None)
Quarter: 2011Q2

REPORT INFORMATION
  Report Type: 
  Country: None (occurrence: None)
  Receive Date: 20110509
  Receipt Date: 20110421
  Transmission Date: 20111010
  Serious: No
  Sender: FDA-Public Use
  Company Number: US-B.I. PHARMACEUTICALS,INC./RIDGEFIELD-2011-BP-06537BP

PATIENT
  Age: 76 Year
  Sex: Male

DRUGS (10)
  1. M.V.I. [Concomitant]
     Indication: PROPHYLAXIS
  2. PRADAXA [Suspect]
     Indication: ATRIAL FIBRILLATION
     Dosage: 150 MG
     Route: 048
     Dates: start: 20110203, end: 20110221
  3. PLENDIL [Concomitant]
     Indication: HYPERTENSION
  4. HYDRO-CHLOR [Concomitant]
     Indication: HYPERTENSION
  5. PRINIVIL [Concomitant]
     Indication: HYPERTENSION
  6. AMILORIDE HYDROCHLORIDE [Concomitant]
     Indication: RENAL DISORDER
  7. PLENDIL [Concomitant]
     Indication: CARDIAC DISORDER
  8. LOPRESSOR [Concomitant]
     Indication: HYPERTENSION
  9. PRINIVIL [Concomitant]
     Indication: CARDIAC DISORDER
  10. PRADAXA [Suspect]
     Indication: ADVERSE DRUG REACTION
     Route: 048
     Dates: start: 20110204, end: 20110221

REACTIONS (7)
  - DIARRHOEA [None]
  - OEDEMA PERIPHERAL [None]
  - PRURITUS GENERALISED [None]
  - GAIT DISTURBANCE [None]
  - ABDOMINAL PAIN UPPER [None]
  - DYSPEPSIA [None]
  - PAIN IN EXTREMITY [None]
